FAERS Safety Report 10435244 (Version 1)
Quarter: 2014Q3

REPORT INFORMATION
  Report Type: Spontaneous
  Country: CH (occurrence: CH)
  Receive Date: 20140907
  Receipt Date: 20140907
  Transmission Date: 20150326
  Serious: Yes (Hospitalization)
  Sender: FDA-Public Use
  Company Number: CH-AMGEN-CHESP2014067724

PATIENT
  Age: 20 Year
  Sex: Female

DRUGS (2)
  1. VI-DE 3 [Concomitant]
     Dosage: GTT 2X/DAY
  2. ENBREL [Suspect]
     Active Substance: ETANERCEPT
     Indication: PRODUCT USED FOR UNKNOWN INDICATION
     Dosage: 50 MG, WEEKLY
     Route: 058
     Dates: start: 20140411, end: 201407

REACTIONS (1)
  - Intestinal ulcer [Unknown]

NARRATIVE: CASE EVENT DATE: 201407
